FAERS Safety Report 6677199-X (Version None)
Quarter: 2010Q2

REPORT INFORMATION
  Report Type: 
  Country: None (occurrence: None)
  Receive Date: 20100412
  Receipt Date: 20100331
  Transmission Date: 20101027
  Serious: Yes (Hospitalization)
  Sender: FDA-Public Use
  Company Number: US-BAYER-201016965NA

PATIENT
  Age: 47 Year
  Sex: Female

DRUGS (3)
  1. BETASERON [Suspect]
     Indication: MULTIPLE SCLEROSIS
     Route: 058
     Dates: end: 20090601
  2. TYSABRI [Concomitant]
     Route: 065
  3. STEROIDS [Concomitant]
     Route: 065
     Dates: start: 20090601, end: 20090601

REACTIONS (1)
  - MULTIPLE SCLEROSIS [None]
